FAERS Safety Report 4892005-1 (Version None)
Quarter: 2006Q1

REPORT INFORMATION
  Report Type: 
  Country: None (occurrence: None)
  Receive Date: 20060126
  Receipt Date: 20060119
  Transmission Date: 20060701
  Serious: Yes (Hospitalization)
  Sender: FDA-Public Use
  Company Number: PHBS2006FI01199

PATIENT
  Age: 54 Year
  Sex: Male

DRUGS (4)
  1. LAMISIL [Suspect]
     Indication: NAIL TINEA
     Route: 048
     Dates: start: 20051101, end: 20051212
  2. RETAFYLLIN [Concomitant]
     Dosage: 200 MG/D
     Route: 048
  3. SYMBICORT TURBUHALER [Concomitant]
     Dosage: 6 PUSH
  4. CETIRIZINE HCL [Concomitant]

REACTIONS (3)
  - ABDOMINAL PAIN UPPER [None]
  - PANCREATITIS [None]
  - URTICARIA [None]
